FAERS Safety Report 8531962-9 (Version None)
Quarter: 2012Q3

REPORT INFORMATION
  Report Type: 
  Country: None (occurrence: None)
  Receive Date: 20120723
  Receipt Date: 20120717
  Transmission Date: 20120928
  Serious: Yes (Other)
  Sender: FDA-Public Use
  Company Number: GB-PFIZER INC-2012171750

PATIENT
  Age: 28 Year
  Sex: Female

DRUGS (1)
  1. LYRICA [Suspect]
     Dosage: 15 X 200 MG PER DAY, UNK
     Dates: start: 20120201

REACTIONS (1)
  - DRUG ABUSE [None]
